FAERS Safety Report 23329614 (Version 1)
Quarter: 2023Q4

REPORT INFORMATION
  Report Type: Spontaneous
  Country: FR (occurrence: FR)
  Receive Date: 20231222
  Receipt Date: 20231222
  Transmission Date: 20240110
  Serious: Yes (Other)
  Sender: FDA-Public Use
  Company Number: FR-IMMUNOCORE, LTD.-2023-IMC-002104

PATIENT

DRUGS (1)
  1. TEBENTAFUSP [Suspect]
     Active Substance: TEBENTAFUSP
     Indication: Product used for unknown indication
     Dosage: UNK
     Dates: start: 20221108, end: 20230221

REACTIONS (1)
  - Malignant neoplasm progression [Unknown]
